FAERS Safety Report 8289563-6 (Version None)
Quarter: 2012Q2

REPORT INFORMATION
  Report Type: 
  Country: None (occurrence: None)
  Receive Date: 20120417
  Receipt Date: 20120409
  Transmission Date: 20120825
  Serious: Yes (Hospitalization)
  Sender: FDA-Public Use
  Company Number: PHHO2009JP16104

PATIENT
  Sex: Female
  Weight: 39 kg

DRUGS (19)
  1. AZULFIDINE [Concomitant]
  2. IMATINIB MESYLATE [Suspect]
     Indication: PULMONARY ARTERIAL HYPERTENSION
     Dosage: 100 MG, UNK
     Route: 048
     Dates: start: 20091214, end: 20091217
  3. TRACLEER [Concomitant]
  4. REVATIO [Concomitant]
  5. LANSOPRAZOLE [Concomitant]
  6. NORVASC [Concomitant]
  7. CEFAZOLIN SODIUM [Concomitant]
  8. IMATINIB MESYLATE [Suspect]
     Dosage: DOUBLE BLIND
     Route: 048
     Dates: start: 20091222
  9. BERAPROST SODIUM [Concomitant]
  10. PERSANTIN [Concomitant]
  11. HIRUDOID [Concomitant]
     Indication: SCLERODERMA
     Route: 062
  12. ALPROSTADIL [Concomitant]
     Indication: SCLERODERMA
     Route: 062
  13. LASIX [Concomitant]
  14. MUCOSOLVAN [Concomitant]
     Dosage: 45 MG, UNK
     Route: 048
     Dates: start: 20100331
  15. CLARITHROMYCIN [Suspect]
     Indication: PNEUMONIA
     Dosage: 200 MG, BID
     Dates: start: 20051028, end: 20091225
  16. CANDESARTAN CILEXETIL [Concomitant]
  17. PITAVASTATIN CALCIUM [Concomitant]
  18. ALLOPURINOL [Concomitant]
     Indication: HYPERURICAEMIA
     Dosage: 100 MG, UNK
     Route: 048
     Dates: start: 20091222
  19. ROHYPNOL [Concomitant]

REACTIONS (3)
  - BLOOD UREA INCREASED [None]
  - BLOOD CREATININE INCREASED [None]
  - RENAL IMPAIRMENT [None]
